FAERS Safety Report 5716894-3 (Version None)
Quarter: 2008Q2

REPORT INFORMATION
  Report Type: 
  Country: None (occurrence: None)
  Receive Date: 20080424
  Receipt Date: 20080401
  Transmission Date: 20081010
  Serious: Yes (Other)
  Sender: FDA-Public Use
  Company Number: US-BOEHRINGER INGELHEIM GMBH, GERMANY-2008-BP-02380BP

PATIENT
  Sex: Male
  Weight: 98 kg

DRUGS (12)
  1. MIRAPEX [Suspect]
     Indication: FIBROMYALGIA
     Route: 048
     Dates: start: 20050801, end: 20051231
  2. MIRAPEX [Suspect]
     Indication: RESTLESS LEGS SYNDROME
     Route: 048
     Dates: start: 20060101, end: 20071224
  3. AMITRIPTYLINE HCL [Concomitant]
     Dates: start: 20050722, end: 20060623
  4. FERROUS SULFATE TAB [Concomitant]
     Dates: start: 19980204
  5. TRIAMCINOLONE [Concomitant]
     Route: 061
     Dates: start: 20070629
  6. ATENOLOL [Concomitant]
     Dates: start: 20040709, end: 20061120
  7. OMEPRAZOLE [Concomitant]
     Dates: start: 20031203
  8. ACETAMINOPHEN AND HYDROCODONE BITARTRATE [Concomitant]
     Dates: start: 20050111
  9. ATENOLOL AND CHLORTHALIDONE [Concomitant]
     Dates: start: 20061208
  10. CYCLOBENZAPRINE HCL [Concomitant]
     Dates: start: 20050915
  11. GEMFIBROZIL [Concomitant]
     Dates: start: 20050722
  12. HYDROXYCHLOROQUINE SULFATE [Concomitant]
     Dates: start: 19970409

REACTIONS (4)
  - ADVERSE REACTION [None]
  - EMOTIONAL DISTRESS [None]
  - FEELING ABNORMAL [None]
  - PATHOLOGICAL GAMBLING [None]
